FAERS Safety Report 13248512 (Version 1)
Quarter: 2017Q1

REPORT INFORMATION
  Report Type: Spontaneous
  Country: US (occurrence: US)
  Receive Date: 20170218
  Receipt Date: 20170218
  Transmission Date: 20170428
  Serious: No
  Sender: FDA-Public Use
  Company Number: US-ALLERGAN-1658478US

PATIENT
  Age: 89 Year
  Sex: Female
  Weight: 59.41 kg

DRUGS (2)
  1. RESTASIS [Suspect]
     Active Substance: CYCLOSPORINE
     Indication: LACRIMATION DECREASED
     Dosage: UNK, BID
     Route: 047
     Dates: start: 20160303, end: 20160521
  2. LOTEMAX [Concomitant]
     Active Substance: LOTEPREDNOL ETABONATE
     Indication: DRY EYE
     Dosage: 1 GTT, BID
     Dates: start: 20160309, end: 20160517

REACTIONS (3)
  - Eye irritation [Recovered/Resolved]
  - Incorrect product storage [Unknown]
  - Lacrimation increased [Recovered/Resolved]

NARRATIVE: CASE EVENT DATE: 20160303
